FAERS Safety Report 7836208-2 (Version None)
Quarter: 2011Q4

REPORT INFORMATION
  Report Type: 
  Country: None (occurrence: None)
  Receive Date: 20111024
  Receipt Date: 20110303
  Transmission Date: 20120403
  Serious: No
  Sender: FDA-Public Use
  Company Number: US-ABBOTT-10P-163-0683180-00

PATIENT
  Sex: Female

DRUGS (3)
  1. LUPRON [Suspect]
  2. LUPRON [Suspect]
     Indication: PRODUCT USED FOR UNKNOWN INDICATION
  3. PROZAC [Concomitant]
     Indication: PRODUCT USED FOR UNKNOWN INDICATION

REACTIONS (5)
  - ILL-DEFINED DISORDER [None]
  - BACK PAIN [None]
  - FATIGUE [None]
  - HEADACHE [None]
  - MOOD ALTERED [None]
